FAERS Safety Report 13802832 (Version 1)
Quarter: 2017Q3

REPORT INFORMATION
  Report Type: Spontaneous
  Country: US (occurrence: US)
  Receive Date: 20170728
  Receipt Date: 20170728
  Transmission Date: 20171127
  Serious: No
  Sender: FDA-Public Use
  Company Number: US-PERRIGO-16US023153

PATIENT
  Age: 57 Year
  Sex: Male
  Weight: 81.63 kg

DRUGS (3)
  1. MINOXIDIL. [Suspect]
     Active Substance: MINOXIDIL
     Dosage: 1 ML, BID
     Route: 061
     Dates: start: 201610, end: 20161124
  2. MINOXIDIL. [Suspect]
     Active Substance: MINOXIDIL
     Indication: ALOPECIA
     Dosage: 1 ML, BID
     Route: 061
     Dates: start: 201507, end: 201610
  3. MINOXIDIL. [Suspect]
     Active Substance: MINOXIDIL
     Dosage: 1 ML, SINGLE
     Route: 061
     Dates: start: 20161226, end: 20161226

REACTIONS (8)
  - Application site pain [Recovering/Resolving]
  - Application site discharge [Recovered/Resolved]
  - Application site pruritus [Recovered/Resolved]
  - Application site dryness [Recovering/Resolving]
  - Application site irritation [Recovering/Resolving]
  - Application site exfoliation [Recovered/Resolved]
  - Application site erythema [Recovering/Resolving]
  - Drug ineffective [Unknown]

NARRATIVE: CASE EVENT DATE: 201507
